FAERS Safety Report 6440583-3 (Version None)
Quarter: 2009Q4

REPORT INFORMATION
  Report Type: 
  Country: None (occurrence: None)
  Receive Date: 20091113
  Receipt Date: 20091111
  Transmission Date: 20100525
  Serious: Yes (Death, Hospitalization)
  Sender: FDA-Public Use
  Company Number: US-GENENTECH-292927

PATIENT
  Sex: Female
  Weight: 133.79 kg

DRUGS (29)
  1. XOLAIR [Suspect]
     Indication: ASTHMA
     Dosage: 375 UNK, Q2W
     Route: 058
     Dates: start: 20040130
  2. METHYLPREDNISOLONE 4MG TAB [Concomitant]
     Indication: DRUG USE FOR UNKNOWN INDICATION
  3. SYMBICORT [Concomitant]
     Indication: DRUG USE FOR UNKNOWN INDICATION
  4. SINGULAIR [Concomitant]
     Indication: DRUG USE FOR UNKNOWN INDICATION
  5. SPIRIVA [Concomitant]
     Indication: DRUG USE FOR UNKNOWN INDICATION
  6. XOPENEX [Concomitant]
     Indication: DRUG USE FOR UNKNOWN INDICATION
  7. DUONEB [Concomitant]
     Indication: DRUG USE FOR UNKNOWN INDICATION
  8. PROVENTIL-HFA [Concomitant]
     Indication: DRUG USE FOR UNKNOWN INDICATION
  9. HYDROXYZINE [Concomitant]
     Indication: DRUG USE FOR UNKNOWN INDICATION
  10. ZYRTEC [Concomitant]
     Indication: DRUG USE FOR UNKNOWN INDICATION
  11. TRIAMCINOLONE ACETONIDE [Concomitant]
     Indication: DRUG USE FOR UNKNOWN INDICATION
  12. EPIPEN [Concomitant]
     Indication: DRUG USE FOR UNKNOWN INDICATION
  13. ATROVENT [Concomitant]
     Indication: DRUG USE FOR UNKNOWN INDICATION
  14. PROTONIX [Concomitant]
     Indication: DRUG USE FOR UNKNOWN INDICATION
  15. LEVOXYL [Concomitant]
     Indication: DRUG USE FOR UNKNOWN INDICATION
  16. CELEXA [Concomitant]
     Indication: DRUG USE FOR UNKNOWN INDICATION
  17. IBUPROFEN [Concomitant]
     Indication: DRUG USE FOR UNKNOWN INDICATION
  18. LASIX [Concomitant]
     Indication: DRUG USE FOR UNKNOWN INDICATION
  19. REGLAN [Concomitant]
     Indication: DRUG USE FOR UNKNOWN INDICATION
  20. TRAVATAN [Concomitant]
     Indication: DRUG USE FOR UNKNOWN INDICATION
  21. DURAGESIC-100 [Concomitant]
     Indication: DRUG USE FOR UNKNOWN INDICATION
  22. ZOFRAN [Concomitant]
     Indication: DRUG USE FOR UNKNOWN INDICATION
  23. CHERATUSSIN (UNK INGREDIENTS) [Concomitant]
     Indication: DRUG USE FOR UNKNOWN INDICATION
  24. MUCINEX [Concomitant]
     Indication: DRUG USE FOR UNKNOWN INDICATION
  25. HYDROCORTISONE [Concomitant]
     Indication: DRUG USE FOR UNKNOWN INDICATION
  26. ZANTAC [Concomitant]
     Indication: DRUG USE FOR UNKNOWN INDICATION
  27. PERCOCET [Concomitant]
     Indication: DRUG USE FOR UNKNOWN INDICATION
  28. DIOVAN [Concomitant]
     Indication: DRUG USE FOR UNKNOWN INDICATION
  29. MAXZIDE [Concomitant]
     Indication: DRUG USE FOR UNKNOWN INDICATION

REACTIONS (1)
  - INFLUENZA [None]
